FAERS Safety Report 16122748 (Version 6)
Quarter: 2020Q3

REPORT INFORMATION
  Report Type: Report from Study
  Country: JP (occurrence: JP)
  Receive Date: 20190327
  Receipt Date: 20190724
  Transmission Date: 20201105
  Serious: Yes (Other)
  Sender: FDA-Public Use
  Company Number: JP-JNJFOC-20190322664

PATIENT
  Age: 50 Year
  Sex: Female
  Weight: 60.7 kg

DRUGS (17)
  1. FLUNITRAZEPAM [Concomitant]
     Active Substance: FLUNITRAZEPAM
     Indication: INSOMNIA
     Route: 048
     Dates: start: 20180514
  2. CYMBALTA [Concomitant]
     Active Substance: DULOXETINE HYDROCHLORIDE
     Route: 048
     Dates: start: 20190212, end: 20190318
  3. CYMBALTA [Concomitant]
     Active Substance: DULOXETINE HYDROCHLORIDE
     Route: 048
     Dates: start: 20190409, end: 20190415
  4. ESCITALOPRAM [Suspect]
     Active Substance: ESCITALOPRAM OXALATE
     Route: 048
     Dates: start: 20181023, end: 20190129
  5. ESCITALOPRAM [Suspect]
     Active Substance: ESCITALOPRAM OXALATE
     Route: 048
     Dates: start: 20190130, end: 20190213
  6. MIANSERIN [Concomitant]
     Active Substance: MIANSERIN
     Indication: DEPRESSION
     Route: 048
     Dates: start: 20190118, end: 20190307
  7. MIANSERIN [Concomitant]
     Active Substance: MIANSERIN
     Route: 048
     Dates: start: 20190508, end: 20190512
  8. MIANSERIN [Concomitant]
     Active Substance: MIANSERIN
     Route: 048
     Dates: start: 20190513
  9. ALPRAZOLAM. [Concomitant]
     Active Substance: ALPRAZOLAM
     Indication: ANXIETY
     Route: 048
     Dates: start: 20180514
  10. CYMBALTA [Concomitant]
     Active Substance: DULOXETINE HYDROCHLORIDE
     Indication: DEPRESSION
     Route: 048
     Dates: start: 20190130, end: 20190211
  11. LOXOPROFEN [Concomitant]
     Active Substance: LOXOPROFEN
     Indication: HEADACHE
     Route: 048
     Dates: start: 20180808
  12. CYMBALTA [Concomitant]
     Active Substance: DULOXETINE HYDROCHLORIDE
     Route: 048
     Dates: start: 20190319, end: 20190408
  13. ESKETAMINE [Suspect]
     Active Substance: ESKETAMINE
     Indication: DEPRESSION
     Dates: start: 20181120, end: 20181213
  14. ESCITALOPRAM [Suspect]
     Active Substance: ESCITALOPRAM OXALATE
     Indication: DEPRESSION
     Route: 048
     Dates: start: 20181010, end: 20181022
  15. BROTIZOLAM [Concomitant]
     Active Substance: BROTIZOLAM
     Indication: INSOMNIA
     Route: 048
     Dates: start: 20180514
  16. MIANSERIN [Concomitant]
     Active Substance: MIANSERIN
     Route: 048
     Dates: start: 20190130, end: 20190317
  17. ETIZOLAM [Concomitant]
     Active Substance: ETIZOLAM
     Indication: ANXIETY
     Route: 048
     Dates: start: 20180918

REACTIONS (2)
  - Muscular weakness [Not Recovered/Not Resolved]
  - Cerebral disorder [Not Recovered/Not Resolved]

NARRATIVE: CASE EVENT DATE: 20190314
